FAERS Safety Report 7194266-5 (Version None)
Quarter: 2010Q4

REPORT INFORMATION
  Report Type: 
  Country: None (occurrence: None)
  Receive Date: 20101223
  Receipt Date: 20101124
  Transmission Date: 20110411
  Serious: Yes (Other)
  Sender: FDA-Public Use
  Company Number: US-AMGEN-TCS432931

PATIENT

DRUGS (2)
  1. ENBREL [Suspect]
     Indication: PSORIATIC ARTHROPATHY
     Dosage: 50 MG, 2 TIMES/WK
     Route: 058
     Dates: start: 20100615
  2. ENBREL [Suspect]
     Indication: PSORIASIS

REACTIONS (8)
  - ABDOMINAL PAIN [None]
  - ASTHENIA [None]
  - DIARRHOEA [None]
  - FLUSHING [None]
  - HYPOAESTHESIA [None]
  - MAMMOGRAM ABNORMAL [None]
  - PARAESTHESIA [None]
  - PULSE ABNORMAL [None]
